FAERS Safety Report 18941400 (Version 1)
Quarter: 2021Q1

REPORT INFORMATION
  Report Type: Spontaneous
  Country: TR (occurrence: TR)
  Receive Date: 20210225
  Receipt Date: 20210225
  Transmission Date: 20210420
  Serious: Yes (Hospitalization, Other)
  Sender: FDA-Public Use
  Company Number: TR-AVION PHARMACEUTICALS, LLC-2107331

PATIENT
  Age: 30 Year
  Sex: Female

DRUGS (2)
  1. GLOPERBA [Suspect]
     Active Substance: COLCHICINE
     Indication: SYSTEMIC LUPUS ERYTHEMATOSUS
     Route: 065
  2. METHYLPREDNISOLONE. [Suspect]
     Active Substance: METHYLPREDNISOLONE
     Route: 065

REACTIONS (6)
  - Arthralgia [Recovered/Resolved]
  - Osteonecrosis [Recovered/Resolved]
  - Joint swelling [Recovered/Resolved]
  - Abscess soft tissue [Recovered/Resolved]
  - Staphylococcal infection [Recovered/Resolved]
  - Arthritis bacterial [Recovered/Resolved]
